FAERS Safety Report 24181997 (Version 1)
Quarter: 2024Q3

REPORT INFORMATION
  Report Type: Spontaneous
  Country: GB (occurrence: GB)
  Receive Date: 20240807
  Receipt Date: 20240807
  Transmission Date: 20241017
  Serious: Yes (Other)
  Sender: DR REDDYS
  Company Number: None

PATIENT

DRUGS (18)
  1. MONTELUKAST [Suspect]
     Active Substance: MONTELUKAST SODIUM
     Indication: Product used for unknown indication
     Dosage: 10MG
  2. AMITRIPTYLINE [Concomitant]
     Active Substance: AMITRIPTYLINE
     Indication: Product used for unknown indication
  3. AMLODIPINE [Concomitant]
     Active Substance: AMLODIPINE BESYLATE
     Indication: Product used for unknown indication
  4. CARBOCYSTEINE [Concomitant]
     Active Substance: CARBOCYSTEINE
     Indication: Product used for unknown indication
  5. CLOPIDOGREL [Concomitant]
     Active Substance: CLOPIDOGREL BISULFATE
     Indication: Product used for unknown indication
  6. DIAZEPAM [Concomitant]
     Active Substance: DIAZEPAM
     Indication: Product used for unknown indication
     Dosage: PRN UP TO BD
  7. LORAZEPAM [Concomitant]
     Active Substance: LORAZEPAM
     Indication: Agitation
     Dosage: PRN UP TO QDS
  8. RISPERIDONE [Concomitant]
     Active Substance: RISPERIDONE
     Indication: Product used for unknown indication
     Route: 048
  9. FLUTICASONE FUROATE [Concomitant]
     Active Substance: FLUTICASONE FUROATE
     Indication: Product used for unknown indication
     Dosage: SPRAY - 1 EACH NOSTRIL OD
  10. GABAPENTIN [Concomitant]
     Active Substance: GABAPENTIN
     Indication: Product used for unknown indication
     Dosage: TDS-QDS
  11. LANSOPRAZOLE [Concomitant]
     Active Substance: LANSOPRAZOLE
     Indication: Product used for unknown indication
  12. POLYETHYLENE GLYCOL 3350\POTASSIUM CHLORIDE\SODIUM BICARBONATE\SODIUM [Concomitant]
     Active Substance: POLYETHYLENE GLYCOL 3350\POTASSIUM CHLORIDE\SODIUM BICARBONATE\SODIUM CHLORIDE
     Indication: Product used for unknown indication
     Dosage: 1 SACHET UP TO QDS
  13. BECLOMETHASONE DIPROPIONATE\FORMOTEROL FUMARATE [Concomitant]
     Active Substance: BECLOMETHASONE DIPROPIONATE\FORMOTEROL FUMARATE
     Indication: Product used for unknown indication
     Dosage: 100/6 2 PUFFS BD (UPTO 8 PUFFS IF NEEDED - MART)
  14. MEMANTINE [Concomitant]
     Active Substance: MEMANTINE
     Indication: Product used for unknown indication
  15. MIRABEGRON [Concomitant]
     Active Substance: MIRABEGRON
     Indication: Product used for unknown indication
  16. MIRTAZAPINE [Concomitant]
     Active Substance: MIRTAZAPINE
     Indication: Product used for unknown indication
  17. TIOTROPIUM BROMIDE [Concomitant]
     Active Substance: TIOTROPIUM BROMIDE
     Indication: Product used for unknown indication
  18. ALBUTEROL [Concomitant]
     Active Substance: ALBUTEROL
     Indication: Product used for unknown indication
     Dosage: T-TT QDS PRN

REACTIONS (1)
  - Psychiatric symptom [Unknown]
